FAERS Safety Report 7365478-2 (Version None)
Quarter: 2011Q1

REPORT INFORMATION
  Report Type: 
  Country: None (occurrence: None)
  Receive Date: 20110322
  Receipt Date: 20110222
  Transmission Date: 20110831
  Serious: Yes (Other)
  Sender: FDA-Public Use
  Company Number: US-BAYER-201033659NA

PATIENT
  Sex: Female

DRUGS (9)
  1. YAZ [Suspect]
     Indication: PRODUCT USED FOR UNKNOWN INDICATION
     Route: 065
     Dates: start: 20080101, end: 20090501
  2. NEXIUM [Concomitant]
     Dosage: 40 MG, CONT
     Route: 048
     Dates: start: 20081115
  3. YASMIN [Suspect]
     Indication: PRODUCT USED FOR UNKNOWN INDICATION
     Route: 065
     Dates: start: 20080101, end: 20090501
  4. CITALOPRAM [Concomitant]
     Dosage: 10 MG, CONT
     Route: 048
     Dates: start: 20080811
  5. SULFACETAMIDE SODIUM [Concomitant]
     Dosage: UNK UNK, TID
     Route: 047
     Dates: start: 20061019
  6. OCELLA [Suspect]
     Indication: PRODUCT USED FOR UNKNOWN INDICATION
     Route: 048
  7. HYDROCODONE BITARTRATE AND ACETAMINOPHEN [Concomitant]
     Dosage: UNK
     Route: 048
     Dates: start: 20081205
  8. UNCODEABLE ^UNCLASSIFIABLE^ [Concomitant]
     Dosage: 4 MG, UNK
     Route: 048
     Dates: start: 20080711
  9. METRONIDAZOLE [Concomitant]
     Dosage: UNK
     Route: 048
     Dates: start: 20091119

REACTIONS (2)
  - CHOLELITHIASIS [None]
  - CHOLECYSTECTOMY [None]
